FAERS Safety Report 19350576 (Version 3)
Quarter: 2021Q3

REPORT INFORMATION
  Report Type: Spontaneous
  Country: IT (occurrence: IT)
  Receive Date: 20210531
  Receipt Date: 20210708
  Transmission Date: 20211014
  Serious: Yes (Life-Threatening, Hospitalization, Other)
  Sender: FDA-Public Use
  Company Number: IT-ACCORD-226475

PATIENT
  Age: 45 Year
  Sex: Male

DRUGS (3)
  1. DIAMORPHINE [Interacting]
     Active Substance: DIAMORPHINE
  2. ROSUVASTATIN. [Suspect]
     Active Substance: ROSUVASTATIN
     Indication: TYPE IIA HYPERLIPIDAEMIA
  3. COCAINE [Interacting]
     Active Substance: COCAINE

REACTIONS (4)
  - Rhabdomyolysis [Recovering/Resolving]
  - Drug interaction [Unknown]
  - Acute kidney injury [Recovering/Resolving]
  - Substance abuse [Unknown]
